FAERS Safety Report 7423944-5 (Version None)
Quarter: 2011Q2

REPORT INFORMATION
  Report Type: 
  Country: None (occurrence: None)
  Receive Date: 20110419
  Receipt Date: 20110412
  Transmission Date: 20111010
  Serious: Yes (Death)
  Sender: FDA-Public Use
  Company Number: A0912970A

PATIENT
  Age: 52 Year
  Sex: Male

DRUGS (1)
  1. ADVAIR HFA [Suspect]
     Route: 065
     Dates: start: 20110104

REACTIONS (1)
  - DEATH [None]
